FAERS Safety Report 20792195 (Version 1)
Quarter: 2022Q2

REPORT INFORMATION
  Report Type: Spontaneous
  Country: US (occurrence: US)
  Receive Date: 20220505
  Receipt Date: 20220505
  Transmission Date: 20220720
  Serious: No
  Sender: FDA-Public Use
  Company Number: US-Blueprint Medicines Corporation-SP-US-2022-001174

PATIENT
  Age: 67 Year
  Sex: Female

DRUGS (2)
  1. AYVAKIT [Suspect]
     Active Substance: AVAPRITINIB
     Indication: Systemic mastocytosis
     Dosage: TAKE 2 TABLETS BY MOUTH ONE DAY ALTERNATING WITH 1 TABLET THE NEXT DAY
     Route: 048
     Dates: start: 20160701
  2. AYVAKIT [Suspect]
     Active Substance: AVAPRITINIB
     Dosage: TAKE 2 TABLETS BY MOUTH ONE DAY ALTERNATING WITH 1 TABLET THE NEXT DAY
     Route: 048
     Dates: start: 20160701

REACTIONS (3)
  - Tryptase increased [Not Recovered/Not Resolved]
  - Migraine [Not Recovered/Not Resolved]
  - Wrong technique in product usage process [Unknown]
